FAERS Safety Report 14247836 (Version 1)
Quarter: 2017Q4

REPORT INFORMATION
  Report Type: Spontaneous
  Country: US (occurrence: None)
  Receive Date: 20171203
  Receipt Date: 20171203
  Transmission Date: 20180321
  Serious: No
  Sender: FDA-Public Use
  Company Number: None

PATIENT
  Age: 15 Year
  Sex: Male

DRUGS (1)
  1. SOLU-MEDROL [Suspect]
     Active Substance: METHYLPREDNISOLONE SODIUM SUCCINATE
     Indication: IMMUNODEFICIENCY COMMON VARIABLE
     Dosage: FREQUENCY - PRIOR TO IG INFUSION
     Route: 042
     Dates: start: 20170601

REACTIONS (1)
  - Product physical issue [None]

NARRATIVE: CASE EVENT DATE: 20171128
